FAERS Safety Report 13513094 (Version 17)
Quarter: 2022Q2

REPORT INFORMATION
  Report Type: Spontaneous
  Country: CL (occurrence: CL)
  Receive Date: 20170504
  Receipt Date: 20220630
  Transmission Date: 20220721
  Serious: Yes (Hospitalization, Other)
  Sender: FDA-Public Use
  Company Number: CL-BIOMARINAP-CL-2017-113866

PATIENT

DRUGS (3)
  1. LARONIDASE [Suspect]
     Active Substance: LARONIDASE
     Indication: Mucopolysaccharidosis I
     Dosage: 4 DF (4 VIALS; 11.6 MG) WEEKLY
     Route: 041
     Dates: start: 202011, end: 202011
  2. LARONIDASE [Suspect]
     Active Substance: LARONIDASE
     Dosage: 4 DF (4 VIALS; 11.6 MG) WEEKLY
     Route: 041
     Dates: end: 202011
  3. LARONIDASE [Suspect]
     Active Substance: LARONIDASE
     Dosage: 4 DF (4 VIALS; 11.6 MG) WEEKLY
     Route: 041

REACTIONS (19)
  - Mitral valve incompetence [Unknown]
  - Hypertension [Recovered/Resolved]
  - Fatigue [Not Recovered/Not Resolved]
  - Tachycardia [Not Recovered/Not Resolved]
  - Hyperhidrosis [Not Recovered/Not Resolved]
  - Cervical cord compression [Not Recovered/Not Resolved]
  - Paraesthesia [Not Recovered/Not Resolved]
  - Intervertebral disc protrusion [Recovering/Resolving]
  - Dislocation of vertebra [Unknown]
  - Carpal tunnel syndrome [Not Recovered/Not Resolved]
  - Pain in extremity [Not Recovered/Not Resolved]
  - Influenza [Unknown]
  - Ear infection [Unknown]
  - Localised infection [Unknown]
  - Neck pain [Unknown]
  - Diarrhoea [Unknown]
  - Nausea [Unknown]
  - Intentional dose omission [Unknown]
  - Therapy interrupted [Unknown]

NARRATIVE: CASE EVENT DATE: 20201025
